FAERS Safety Report 15215660 (Version 1)
Quarter: 2018Q3

REPORT INFORMATION
  Report Type: Spontaneous
  Country: US (occurrence: US)
  Receive Date: 20180730
  Receipt Date: 20180730
  Transmission Date: 20181010
  Serious: No
  Sender: FDA-Public Use
  Company Number: US-ENDO PHARMACEUTICALS INC-2017-006084

PATIENT
  Age: 40 Year
  Sex: Male
  Weight: 65.76 kg

DRUGS (1)
  1. SUMAVEL DOSEPRO [Suspect]
     Active Substance: SUMATRIPTAN SUCCINATE
     Indication: MIGRAINE
     Dosage: 6 MG, PRN, INJECTED INTO THIGH
     Route: 065
     Dates: start: 2013

REACTIONS (4)
  - Foreign body [Not Recovered/Not Resolved]
  - Device malfunction [Unknown]
  - Underdose [Unknown]
  - Injection site injury [Not Recovered/Not Resolved]

NARRATIVE: CASE EVENT DATE: 20171107
